FAERS Safety Report 7971240-X (Version None)
Quarter: 2011Q4

REPORT INFORMATION
  Report Type: 
  Country: None (occurrence: None)
  Receive Date: 20111212
  Receipt Date: 20111206
  Transmission Date: 20120403
  Serious: Yes (Death, Other)
  Sender: FDA-Public Use
  Company Number: JP-PFIZER INC-2011292714

PATIENT
  Age: 65 Year
  Sex: Female

DRUGS (2)
  1. ZYVOX [Suspect]
     Dosage: 1200 MG DAILY
     Route: 042
  2. ZYVOX [Suspect]
     Route: 048

REACTIONS (1)
  - PANCYTOPENIA [None]
